FAERS Safety Report 19108640 (Version 2)
Quarter: 2021Q2

REPORT INFORMATION
  Report Type: Report from Study
  Country: US (occurrence: US)
  Receive Date: 20210408
  Receipt Date: 20210419
  Transmission Date: 20210717
  Serious: Yes (Other)
  Sender: FDA-Public Use
  Company Number: US-TEVA-2021-US-1896134

PATIENT
  Sex: Female

DRUGS (3)
  1. OXYBUTAN [Concomitant]
     Active Substance: OXYBUTYNIN
  2. COPAXONE [Suspect]
     Active Substance: GLATIRAMER ACETATE
     Route: 065
     Dates: start: 20210106
  3. SINEQUAN [Concomitant]
     Active Substance: DOXEPIN HYDROCHLORIDE

REACTIONS (9)
  - Lethargy [Recovered/Resolved]
  - Loss of consciousness [Unknown]
  - Injection site bruising [Unknown]
  - Disorientation [Recovered/Resolved]
  - Syncope [Unknown]
  - Feeling jittery [Recovered/Resolved]
  - Injection site mass [Recovered/Resolved]
  - Injection site erythema [Recovered/Resolved]
  - Hypotension [Unknown]

NARRATIVE: CASE EVENT DATE: 20210317
